FAERS Safety Report 15140091 (Version 1)
Quarter: 2018Q3

REPORT INFORMATION
  Report Type: Spontaneous
  Country: US (occurrence: US)
  Receive Date: 20180618
  Receipt Date: 20180618
  Transmission Date: 20181010
  Serious: Yes (Death)
  Sender: FDA-Public Use
  Company Number: None

PATIENT
  Age: 75 Year
  Sex: Female

DRUGS (2)
  1. FORTEO [Suspect]
     Active Substance: TERIPARATIDE
     Indication: FATIGUE
     Route: 058
     Dates: start: 20180503, end: 20180605
  2. FORTEO [Suspect]
     Active Substance: TERIPARATIDE
     Indication: SPINAL FRACTURE
     Route: 058
     Dates: start: 20180503, end: 20180605

REACTIONS (1)
  - Death [None]

NARRATIVE: CASE EVENT DATE: 20180605
